FAERS Safety Report 25841801 (Version 1)
Quarter: 2025Q3

REPORT INFORMATION
  Report Type: Spontaneous
  Country: US (occurrence: None)
  Receive Date: 20250924
  Receipt Date: 20250924
  Transmission Date: 20251021
  Serious: Yes (Hospitalization)
  Sender: FDA-CTU
  Company Number: None

PATIENT
  Sex: Female

DRUGS (11)
  1. MYCOPHENOLIC ACID [Suspect]
     Active Substance: MYCOPHENOLIC ACID
     Indication: Renal transplant
     Dosage: FREQUENCY : TWICE A DAY;?
     Route: 048
     Dates: start: 20250915
  2. ATOVAQUONE [Concomitant]
     Active Substance: ATOVAQUONE
  3. CALCITRIOL [Concomitant]
     Active Substance: CALCITRIOL
  4. CALCITRIOL CAP 0.5MCG [Concomitant]
  5. CARVEDILOL TAB 25MG [Concomitant]
  6. ENVARSUS XR [Concomitant]
     Active Substance: TACROLIMUS
  7. EPOGEN [Concomitant]
     Active Substance: ERYTHROPOIETIN
  8. FLUCONAZOLE TAB 150MG [Concomitant]
  9. FUROSEMIDE [Concomitant]
     Active Substance: FUROSEMIDE
  10. HYDROXYCHLOROQUINE [Concomitant]
     Active Substance: HYDROXYCHLOROQUINE
  11. IRBESARTAN TAB 150MG [Concomitant]

REACTIONS (3)
  - Fluid retention [None]
  - Diarrhoea [None]
  - Abdominal discomfort [None]
